FAERS Safety Report 8405670-9 (Version None)
Quarter: 2012Q2

REPORT INFORMATION
  Report Type: 
  Country: None (occurrence: None)
  Receive Date: 20120604
  Receipt Date: 20120525
  Transmission Date: 20120825
  Serious: No
  Sender: FDA-Public Use
  Company Number: US-BIOGENIDEC-2012BI018685

PATIENT
  Age: 63 Year
  Sex: Female

DRUGS (2)
  1. AVONEX [Suspect]
     Indication: MULTIPLE SCLEROSIS
     Route: 030
     Dates: start: 20010625
  2. AVONEX [Suspect]
     Route: 030
     Dates: start: 20090929

REACTIONS (3)
  - ERYTHEMA [None]
  - RASH MACULAR [None]
  - JOINT SWELLING [None]
